FAERS Safety Report 9652856 (Version 1)
Quarter: 2013Q4

REPORT INFORMATION
  Report Type: Spontaneous
  Country: KE (occurrence: KE)
  Receive Date: 20131029
  Receipt Date: 20131029
  Transmission Date: 20140711
  Serious: Yes (Other)
  Sender: FDA-Public Use
  Company Number: KE-PFIZER INC-2013307029

PATIENT
  Sex: Male

DRUGS (3)
  1. EPANUTIN [Suspect]
     Indication: COMPLEX PARTIAL SEIZURES
     Dosage: 300 MG, AT NIGHT
  2. PHENOBARBITONE [Suspect]
     Indication: CONVULSION
     Dosage: 60 MG, AT NIGHT
  3. VALPROATE SODIUM [Suspect]
     Indication: CONVULSION
     Dosage: 600 MG, AT NIGHT

REACTIONS (5)
  - Drug ineffective [Not Recovered/Not Resolved]
  - Mental retardation [Unknown]
  - Postictal state [Unknown]
  - Headache [Unknown]
  - Pain [Unknown]
